FAERS Safety Report 23361222 (Version 1)
Quarter: 2024Q1

REPORT INFORMATION
  Report Type: Spontaneous
  Country: US (occurrence: None)
  Receive Date: 20240102
  Receipt Date: 20240102
  Transmission Date: 20240410
  Serious: Yes (Other)
  Sender: FDA-Public Use
  Company Number: None

PATIENT
  Age: 17 Year
  Sex: Female
  Weight: 65.25 kg

DRUGS (5)
  1. AJOVY [Suspect]
     Active Substance: FREMANEZUMAB-VFRM
     Indication: Headache
     Dosage: OTHER QUANTITY : 1 INJECTION(S);?OTHER FREQUENCY : EVERY 30 DAYS;?
     Route: 030
     Dates: start: 20231223, end: 20231224
  2. SUMATRIPTAN [Concomitant]
  3. VOLNEA [Concomitant]
     Active Substance: DESOGESTREL\ETHINYL ESTRADIOL
  4. VITAMIN B COMPLEX [Concomitant]
     Active Substance: CYANOCOBALAMIN\DEXPANTHENOL\NIACINAMIDE\PYRIDOXINE HYDROCHLORIDE\RIBOFLAVIN 5^-PHOSPHATE SODIUM\THIA
  5. MAGNESIUM [Concomitant]

REACTIONS (8)
  - Injection site haemorrhage [None]
  - Dizziness [None]
  - Pallor [None]
  - Hyperhidrosis [None]
  - Vomiting [None]
  - Respiration abnormal [None]
  - Abdominal pain upper [None]
  - Asthenia [None]

NARRATIVE: CASE EVENT DATE: 20231223
